FAERS Safety Report 19719033 (Version 2)
Quarter: 2021Q4

REPORT INFORMATION
  Report Type: Report from Study
  Country: IN (occurrence: IN)
  Receive Date: 20210818
  Receipt Date: 20211020
  Transmission Date: 20220303
  Serious: Yes (Death, Hospitalization, Other)
  Sender: FDA-Public Use
  Company Number: NVSC2021IN183616

PATIENT
  Age: 48 Year
  Sex: Male

DRUGS (4)
  1. CERTICAN [Suspect]
     Active Substance: EVEROLIMUS
     Indication: Renal transplant
     Dosage: 0.25 MG, BID
     Route: 065
     Dates: start: 20160620, end: 20210805
  2. NEORAL [Suspect]
     Active Substance: CYCLOSPORINE
     Indication: Renal transplant
     Dosage: 75 MG, BID
     Route: 065
     Dates: start: 20160620, end: 20210805
  3. TACROLIMUS [Suspect]
     Active Substance: TACROLIMUS
     Indication: Renal transplant
     Dosage: 1 MG, BID
     Route: 065
     Dates: start: 20210806
  4. MYFORTIC [Suspect]
     Active Substance: MYCOPHENOLATE SODIUM
     Indication: Renal transplant
     Dosage: 360 MG, BID
     Route: 065
     Dates: start: 20160620

REACTIONS (3)
  - Death [Fatal]
  - Renal impairment [Unknown]
  - Liver disorder [Unknown]

NARRATIVE: CASE EVENT DATE: 20210804
